FAERS Safety Report 5977254-3 (Version None)
Quarter: 2008Q4

REPORT INFORMATION
  Report Type: 
  Country: None (occurrence: None)
  Receive Date: 20081125
  Receipt Date: 20081110
  Transmission Date: 20090506
  Serious: Yes (Hospitalization, Other)
  Sender: FDA-Public Use
  Company Number: 2008S1011267

PATIENT
  Age: 65 Year
  Sex: Male

DRUGS (2)
  1. WARFARIN SODIUM [Suspect]
     Indication: ATRIAL FIBRILLATION
     Dosage: ORAL
     Route: 048
  2. AMLODIPINE [Concomitant]

REACTIONS (6)
  - CONJUNCTIVAL DISORDER [None]
  - CONJUNCTIVAL HAEMORRHAGE [None]
  - CORNEAL DISORDER [None]
  - DIPLOPIA [None]
  - EYE DISCHARGE [None]
  - LAGOPHTHALMOS [None]
